FAERS Safety Report 7876652-0 (Version None)
Quarter: 2011Q4

REPORT INFORMATION
  Report Type: 
  Country: None (occurrence: None)
  Receive Date: 20111031
  Receipt Date: 20111021
  Transmission Date: 20120403
  Serious: Yes (Other)
  Sender: FDA-Public Use
  Company Number: US-BAYER-201038693NA

PATIENT
  Age: 54 Year
  Sex: Female
  Weight: 61.678 kg

DRUGS (1)
  1. DROSPIRENONE AND ETHINYL ESTRADIOL [Suspect]
     Indication: CONTRACEPTION
     Dosage: UNK UNK, QD
     Route: 048
     Dates: start: 20100110, end: 20100412

REACTIONS (4)
  - THROMBOSIS [None]
  - PAIN [None]
  - INJURY [None]
  - PULMONARY EMBOLISM [None]
